FAERS Safety Report 4276280-2 (Version None)
Quarter: 2004Q1

REPORT INFORMATION
  Report Type: 
  Country: None (occurrence: None)
  Receive Date: 20040121
  Receipt Date: 20040115
  Transmission Date: 20041129
  Serious: Yes (Hospitalization)
  Sender: FDA-Public Use
  Company Number: GB-ROCHE-356144

PATIENT
  Age: 69 Year
  Sex: Male
  Weight: 75 kg

DRUGS (7)
  1. CAPECITABINE [Suspect]
     Dosage: 3 WEEKS TREATMENT ONE WEEKS REST
     Route: 048
     Dates: start: 20030612, end: 20030730
  2. GEMCITABINE [Suspect]
     Route: 042
     Dates: start: 20030612
  3. LANSOPRAZOLE [Concomitant]
     Route: 048
     Dates: start: 20030515
  4. METHOTRIMEPRAZINE [Concomitant]
     Route: 048
     Dates: start: 20030615
  5. TEMAZEPAM [Concomitant]
     Route: 048
     Dates: start: 20030615
  6. MORPHINE SULFATE [Concomitant]
     Route: 048
     Dates: start: 20030515
  7. DALTEPARIN [Concomitant]
     Route: 058
     Dates: start: 20030730

REACTIONS (1)
  - DIVERTICULITIS [None]
